FAERS Safety Report 4313381-4 (Version None)
Quarter: 2004Q1

REPORT INFORMATION
  Report Type: 
  Country: None (occurrence: None)
  Receive Date: 20040305
  Receipt Date: 20040305
  Transmission Date: 20041129
  Serious: No
  Sender: FDA-Public Use
  Company Number: None

PATIENT
  Sex: Female
  Weight: 97.7 kg

DRUGS (2)
  1. VANCOMYCIN [Suspect]
     Indication: STAPHYLOCOCCAL INFECTION
     Dosage: 1 GM /200 ML Q12 H IV
     Route: 042
     Dates: start: 20040211, end: 20040228
  2. ZOSYN [Suspect]
     Indication: BACTERAEMIA
     Dosage: 4.56 M/100 ML Q6H IV
     Route: 042
     Dates: start: 20040211, end: 20040303

REACTIONS (1)
  - PRURITUS [None]
